FAERS Safety Report 15423776 (Version 1)
Quarter: 2018Q3

REPORT INFORMATION
  Report Type: Spontaneous
  Country: US (occurrence: US)
  Receive Date: 20180920
  Receipt Date: 20180920
  Transmission Date: 20181010
  Serious: No
  Sender: FDA-Public Use
  Company Number: None

PATIENT
  Age: 70 Year
  Sex: Female
  Weight: 56.7 kg

DRUGS (8)
  1. CLINDAMYCIN HCL 300 MG [Suspect]
     Active Substance: CLINDAMYCIN HYDROCHLORIDE
     Indication: INFECTION PROPHYLAXIS
     Dosage: ?          QUANTITY:40 PILLS;?
     Route: 048
     Dates: start: 20170812
  2. CLINDAMYCIN HCL 300 MG [Suspect]
     Active Substance: CLINDAMYCIN HYDROCHLORIDE
     Indication: IMPAIRED HEALING
     Dosage: ?          QUANTITY:40 PILLS;?
     Route: 048
     Dates: start: 20170812
  3. ESTER C [Concomitant]
  4. VITAMINS [Concomitant]
     Active Substance: VITAMINS
  5. IBUPROFEN. [Concomitant]
     Active Substance: IBUPROFEN
  6. VITAMIN D3 [Concomitant]
     Active Substance: CHOLECALCIFEROL
  7. CLINDAMYCIN HCL 300 MG [Suspect]
     Active Substance: CLINDAMYCIN HYDROCHLORIDE
     Indication: TOOTH EXTRACTION
     Dosage: ?          QUANTITY:40 PILLS;?
     Route: 048
     Dates: start: 20170812
  8. METROPOLOL [Concomitant]
     Active Substance: METOPROLOL

REACTIONS (5)
  - Hypophagia [None]
  - Nausea [None]
  - Rectal haemorrhage [None]
  - Pyrexia [None]
  - Pruritus [None]

NARRATIVE: CASE EVENT DATE: 201710
